FAERS Safety Report 9360633 (Version 1)
Quarter: 2013Q2

REPORT INFORMATION
  Report Type: Spontaneous
  Country: CH (occurrence: CH)
  Receive Date: 20130621
  Receipt Date: 20130621
  Transmission Date: 20140414
  Serious: Yes (Death)
  Sender: FDA-Public Use
  Company Number: CH-EISAI INC-E7272-00166-SPO-CH

PATIENT
  Age: 58 Year
  Sex: Male

DRUGS (2)
  1. ONTAK [Suspect]
     Indication: EXTRANODAL NK/T-CELL LYMPHOMA, NASAL TYPE
     Route: 041
  2. TARGRETIN CAPSULES [Suspect]
     Indication: EXTRANODAL NK/T-CELL LYMPHOMA, NASAL TYPE
     Route: 048

REACTIONS (1)
  - Septic shock [Fatal]
